FAERS Safety Report 11346429 (Version 1)
Quarter: 2015Q3

REPORT INFORMATION
  Report Type: Spontaneous
  Country: US (occurrence: US)
  Receive Date: 20150803
  Receipt Date: 20150803
  Transmission Date: 20151125
  Serious: No
  Sender: FDA-Public Use
  Company Number: US-ELI_LILLY_AND_COMPANY-US201009007647

PATIENT
  Sex: Female

DRUGS (5)
  1. ZYPREXA [Suspect]
     Active Substance: OLANZAPINE
     Dosage: 2.5 MG, QOD
  2. ZYPREXA [Suspect]
     Active Substance: OLANZAPINE
     Dosage: 2.5 MG, EVERY TWO DAYS
  3. ZYPREXA [Suspect]
     Active Substance: OLANZAPINE
     Indication: PERSECUTORY DELUSION
     Dosage: 10 MG, DAILY (1/D)
     Dates: start: 2005, end: 200906
  4. ZYPREXA [Suspect]
     Active Substance: OLANZAPINE
     Indication: PERSECUTORY DELUSION
     Dosage: 2.5 MG, DAILY (1/D)
     Dates: start: 200906
  5. ZYPREXA [Suspect]
     Active Substance: OLANZAPINE
     Dosage: 2.5 MG, EVERY THREE DAYS
     Dates: end: 201006

REACTIONS (4)
  - Anxiety [Unknown]
  - Dyspnoea [Unknown]
  - Panic attack [Unknown]
  - Heart rate increased [Unknown]

NARRATIVE: CASE EVENT DATE: 2009
